FAERS Safety Report 6926689-0 (Version None)
Quarter: 2010Q3

REPORT INFORMATION
  Report Type: 
  Country: None (occurrence: None)
  Receive Date: 20100816
  Receipt Date: 20100625
  Transmission Date: 20110219
  Serious: No
  Sender: FDA-Public Use
  Company Number: US-ABBOTT-10P-163-0653672-00

PATIENT
  Sex: Female
  Weight: 63.56 kg

DRUGS (1)
  1. SIMCOR [Suspect]
     Indication: HYPERCHOLESTEROLAEMIA
     Dosage: 750/20MG
     Dates: start: 20100618, end: 20100619

REACTIONS (2)
  - PARAESTHESIA [None]
  - RASH [None]
